FAERS Safety Report 24356918 (Version 4)
Quarter: 2024Q4

REPORT INFORMATION
  Report Type: Spontaneous
  Country: US (occurrence: US)
  Receive Date: 20240924
  Receipt Date: 20241125
  Transmission Date: 20250115
  Serious: Yes (Other)
  Sender: BAYER HEALTHCARE LLC
  Company Number: US-BAYER-2024A135547

PATIENT

DRUGS (1)
  1. AFRIN ORIGINAL NASAL [Suspect]
     Active Substance: OXYMETAZOLINE HYDROCHLORIDE
     Indication: Product used for unknown indication
     Dosage: UNK
     Dates: end: 20240820

REACTIONS (5)
  - Drug dependence [Unknown]
  - Nasal obstruction [Unknown]
  - Headache [None]
  - Nasal congestion [Not Recovered/Not Resolved]
  - Sinus disorder [Unknown]
